FAERS Safety Report 18238594 (Version 9)
Quarter: 2021Q1

REPORT INFORMATION
  Report Type: Spontaneous
  Country: US (occurrence: US)
  Receive Date: 20200907
  Receipt Date: 20210203
  Transmission Date: 20210419
  Serious: Yes (Other)
  Sender: FDA-Public Use
  Company Number: US-PFIZER INC-2020341325

PATIENT
  Age: 65 Year
  Sex: Male

DRUGS (2)
  1. LYRICA [Suspect]
     Active Substance: PREGABALIN
     Dosage: UNK, 2X/DAY
  2. LYRICA [Suspect]
     Active Substance: PREGABALIN
     Dosage: UNK, 3X/DAY

REACTIONS (10)
  - Amnesia [Unknown]
  - Drug ineffective [Unknown]
  - Fall [Unknown]
  - Limb discomfort [Unknown]
  - Hypersensitivity [Unknown]
  - Dehydration [Unknown]
  - Loss of consciousness [Unknown]
  - Joint injury [Unknown]
  - Dyslexia [Unknown]
  - Limb injury [Unknown]
